FAERS Safety Report 14582927 (Version 3)
Quarter: 2018Q2

REPORT INFORMATION
  Report Type: Spontaneous
  Country: NL (occurrence: NL)
  Receive Date: 20180228
  Receipt Date: 20180601
  Transmission Date: 20180711
  Serious: Yes (Hospitalization)
  Sender: FDA-Public Use
  Company Number: NL-TEVA-2018-NL-855026

PATIENT

DRUGS (6)
  1. OXALIPLATIN INJECTION 50MG/10 ML+100MG/20ML [Suspect]
     Active Substance: OXALIPLATIN
     Indication: COLORECTAL CANCER
     Dosage: MOST RECENT DOSE PRIOR TO ADVERSE EVENT 13/NOV/2017
     Route: 065
     Dates: start: 20170524
  2. IRINOTECAN [Suspect]
     Active Substance: IRINOTECAN
     Indication: COLORECTAL CANCER
     Dosage: MOST RECENT DOSE PRIOR TO ADVERSE EVENT 13/NOV/2017
     Route: 065
     Dates: start: 20170524
  3. 5-FU [Suspect]
     Active Substance: FLUOROURACIL
     Indication: COLORECTAL CANCER
     Dosage: MOST RECENT DOSE PRIOR TO ADVERSE EVENT 13/NOV/2017
     Route: 065
     Dates: start: 20170524
  4. AVASTIN [Suspect]
     Active Substance: BEVACIZUMAB
     Indication: COLORECTAL CANCER
     Dosage: MOST RECENT DOSE PRIOR TO ADVERSE EVENT 13/NOV/2017
     Route: 065
     Dates: start: 20170524
  5. LEUCOVORIN. [Suspect]
     Active Substance: LEUCOVORIN
     Indication: COLORECTAL CANCER
     Dosage: MOST RECENT DOSE PRIOR TO ADVERSE EVENT 13/NOV/2017
     Route: 065
     Dates: start: 20170524
  6. PEGYLATED LIPOSOMAL IRINOTECAN [Suspect]
     Active Substance: IRINOTECAN HYDROCHLORIDE
     Indication: COLORECTAL CANCER
     Dosage: MOST RECENT DOSE PRIOR TO ADVERSE EVENT 13/NOV/2017.
     Route: 065
     Dates: start: 20170524

REACTIONS (1)
  - Diplopia [Recovering/Resolving]

NARRATIVE: CASE EVENT DATE: 20171121
